FAERS Safety Report 4343625-4 (Version None)
Quarter: 2004Q2

REPORT INFORMATION
  Report Type: 
  Country: None (occurrence: None)
  Receive Date: 20040419
  Receipt Date: 20040406
  Transmission Date: 20050107
  Serious: Yes (Hospitalization)
  Sender: FDA-Public Use
  Company Number: 2004018217

PATIENT
  Age: 78 Year
  Sex: Female

DRUGS (1)
  1. ZITHROMAX [Suspect]
     Indication: BRONCHITIS
     Dosage: 500 MG (DAILY), ORAL
     Route: 048
     Dates: start: 20040130, end: 20040131

REACTIONS (10)
  - BLOOD POTASSIUM DECREASED [None]
  - CHEST X-RAY ABNORMAL [None]
  - CYANOSIS [None]
  - DEHYDRATION [None]
  - DIARRHOEA [None]
  - HYPERSENSITIVITY [None]
  - NAUSEA [None]
  - PRURITUS [None]
  - URINE KETONE BODY PRESENT [None]
  - VOMITING [None]
